FAERS Safety Report 8926440 (Version 1)
Quarter: 2012Q4

REPORT INFORMATION
  Report Type: 
  Country: GB (occurrence: GB)
  Receive Date: 20121127
  Receipt Date: 20121127
  Transmission Date: 20130627
  Serious: Yes (Life-Threatening, Hospitalization)
  Sender: FDA-Public Use
  Company Number: GB-PFIZER INC-HQWYE462318FEB03

PATIENT
  Age: 7 Year
  Sex: Female

DRUGS (1)
  1. MOTRIN [Suspect]
     Indication: PYREXIA
     Dosage: 6 mg/kg single dose
     Route: 048

REACTIONS (1)
  - Hypothermia [Recovered/Resolved]
